FAERS Safety Report 7359499-3 (Version None)
Quarter: 2011Q1

REPORT INFORMATION
  Report Type: 
  Country: None (occurrence: None)
  Receive Date: 20110317
  Receipt Date: 20091215
  Transmission Date: 20110831
  Serious: Yes (Other)
  Sender: FDA-Public Use
  Company Number: US-PFIZER INC-2009310860

PATIENT
  Age: 74 Year
  Sex: Male

DRUGS (6)
  1. LUNESTA [Suspect]
     Indication: INSOMNIA
     Dosage: 1 OR 2 MG, 1X/DAY
     Route: 048
     Dates: start: 20090901, end: 20090901
  2. LUNESTA [Suspect]
     Dosage: 3 MG, 1X/DAY
     Route: 048
     Dates: start: 20090901, end: 20091001
  3. VIAGRA [Suspect]
     Indication: ERECTILE DYSFUNCTION
     Dosage: UNK
  4. NORVASC [Suspect]
     Indication: HYPERTENSION
     Dosage: UNK
  5. TOPROL-XL [Suspect]
     Indication: HYPERTENSION
     Dosage: UNK
  6. VALSARTAN [Suspect]
     Indication: HYPERTENSION
     Dosage: UNK

REACTIONS (1)
  - BLOOD PRESSURE DECREASED [None]
